FAERS Safety Report 18821266 (Version 2)
Quarter: 2021Q1

REPORT INFORMATION
  Report Type: Report from Study
  Country: US (occurrence: US)
  Receive Date: 20210201
  Receipt Date: 20210209
  Transmission Date: 20210419
  Serious: No
  Sender: FDA-Public Use
  Company Number: NVSC2021US013079

PATIENT
  Sex: Female

DRUGS (3)
  1. ENTRESTO [Suspect]
     Active Substance: SACUBITRIL\VALSARTAN
     Indication: ANAEMIA
  2. ENTRESTO [Suspect]
     Active Substance: SACUBITRIL\VALSARTAN
     Indication: BRADYCARDIA
     Dosage: 200 MG, BID (97/103)
     Route: 048
     Dates: start: 202001
  3. ENTRESTO [Suspect]
     Active Substance: SACUBITRIL\VALSARTAN
     Indication: CARDIAC FAILURE
     Dosage: UNK, BID (97/103 MG)
     Route: 048
     Dates: start: 202002

REACTIONS (8)
  - Muscle rigidity [Unknown]
  - Anaemia [Unknown]
  - COVID-19 [Unknown]
  - Product dose omission issue [Unknown]
  - Memory impairment [Unknown]
  - Weight increased [Unknown]
  - Neuralgia [Unknown]
  - Product use in unapproved indication [Unknown]

NARRATIVE: CASE EVENT DATE: 2020
